FAERS Safety Report 4977575-7 (Version None)
Quarter: 2006Q2

REPORT INFORMATION
  Report Type: 
  Country: None (occurrence: None)
  Receive Date: 20060414
  Receipt Date: 20060330
  Transmission Date: 20061013
  Serious: Yes (Hospitalization, Disabling, Other)
  Sender: FDA-Public Use
  Company Number: VNL_0113_2006

PATIENT
  Age: 84 Year
  Sex: Female

DRUGS (3)
  1. APOMORPHINE HYDROCHLORIDE [Suspect]
     Indication: PARKINSON'S DISEASE
     Dosage: 66 MG/DAY INFUSION SC
     Route: 058
     Dates: start: 20050622
  2. CO-CARELDOPA [Suspect]
     Indication: PARKINSON'S DISEASE
     Dosage: 125 MG QID  PO
     Route: 048
  3. CO-CARELDOPA [Suspect]
     Indication: PARKINSON'S DISEASE
     Dosage: 250 MG QHS PO
     Route: 048

REACTIONS (7)
  - ANAEMIA HAEMOLYTIC AUTOIMMUNE [None]
  - FALL [None]
  - HEART RATE INCREASED [None]
  - HYPERHIDROSIS [None]
  - NAUSEA [None]
  - OXYGEN SATURATION DECREASED [None]
  - VOMITING [None]
